FAERS Safety Report 6735154-5 (Version None)
Quarter: 2010Q2

REPORT INFORMATION
  Report Type: 
  Country: None (occurrence: None)
  Receive Date: 20100519
  Receipt Date: 20100519
  Transmission Date: 20101027
  Serious: Yes (Other)
  Sender: FDA-Public Use
  Company Number: None

PATIENT
  Sex: Female
  Weight: 61.6892 kg

DRUGS (1)
  1. AMLODIPINE [Suspect]
     Dosage: 1 TAB DAILY
     Dates: start: 20020609

REACTIONS (1)
  - OEDEMA PERIPHERAL [None]
